FAERS Safety Report 4816233-6 (Version None)
Quarter: 2005Q4

REPORT INFORMATION
  Report Type: 
  Country: None (occurrence: None)
  Receive Date: 20051026
  Receipt Date: 20051010
  Transmission Date: 20060501
  Serious: Yes (Hospitalization)
  Sender: FDA-Public Use
  Company Number: 218446

PATIENT
  Age: 63 Year
  Sex: Male
  Weight: 81 kg

DRUGS (12)
  1. AVASTIN [Suspect]
     Indication: COLORECTAL CANCER METASTATIC
     Dosage: 600 MG
     Dates: start: 20050922
  2. XELODA [Suspect]
     Indication: COLORECTAL CANCER METASTATIC
     Dosage: 4000 MG, QD
     Dates: start: 20050922
  3. MITOMYCIN [Suspect]
     Indication: COLORECTAL CANCER METASTATIC
  4. KARVEZIDE (HYDROCHLOROTHIAZIDE, IRBESARTAN) [Concomitant]
  5. ESOMEPRAZOLE (ESOMEPRAZOLE MAGNESIUM) [Concomitant]
  6. DIAZEPAM [Concomitant]
  7. PAROXETINE (PAROXETINE HYDROCHLORIDE) [Concomitant]
  8. SIMVASTATIN [Concomitant]
  9. COLOXYL (DOCUSATE SODIUM) [Concomitant]
  10. TRAMADOL HCL [Concomitant]
  11. DICLOFENAC SODIUM [Concomitant]
  12. NORVASC [Concomitant]

REACTIONS (2)
  - FEBRILE NEUTROPENIA [None]
  - PYREXIA [None]
